FAERS Safety Report 6450401-5 (Version None)
Quarter: 2009Q4

REPORT INFORMATION
  Report Type: 
  Country: None (occurrence: None)
  Receive Date: 20091123
  Receipt Date: 20091113
  Transmission Date: 20100525
  Serious: Yes (Hospitalization)
  Sender: FDA-Public Use
  Company Number: US-RB-024994-09

PATIENT
  Age: 95 Year
  Sex: Female

DRUGS (1)
  1. SUBOXONE [Suspect]
     Indication: PAIN
     Dosage: DOSING SCHEDULE: 16-24MG DAILY
     Route: 060

REACTIONS (1)
  - AORTIC THROMBOSIS [None]
